FAERS Safety Report 24225323 (Version 4)
Quarter: 2025Q4

REPORT INFORMATION
  Report Type: Report from Study
  Country: UY (occurrence: UY)
  Receive Date: 20240820
  Receipt Date: 20251023
  Transmission Date: 20260117
  Serious: Yes (Hospitalization)
  Sender: ABBVIE
  Company Number: UY-ABBVIE-5882597

PATIENT
  Sex: Female

DRUGS (2)
  1. RINVOQ [Suspect]
     Active Substance: UPADACITINIB
     Indication: Rheumatoid arthritis
     Dosage: FORM STRENGTH: 15 MILLIGRAM, 30 TABLETS
     Route: 048
     Dates: start: 20220123
  2. RINVOQ [Suspect]
     Active Substance: UPADACITINIB
     Indication: Rheumatoid arthritis
     Dosage: FORM STRENGTH: 15 MILLIGRAM, 30 TABLETS
     Route: 048
     Dates: start: 20220123

REACTIONS (8)
  - Renal cyst [Not Recovered/Not Resolved]
  - Pain in extremity [Unknown]
  - Peripheral swelling [Unknown]
  - Urinary tract infection [Unknown]
  - Walking aid user [Unknown]
  - Fall [Unknown]
  - Pain in extremity [Unknown]
  - Glucose tolerance impaired [Unknown]
